FAERS Safety Report 4817842-0 (Version None)
Quarter: 2005Q3

REPORT INFORMATION
  Report Type: 
  Country: None (occurrence: None)
  Receive Date: 20050929
  Receipt Date: 20050628
  Transmission Date: 20060218
  Serious: No
  Sender: FDA-Public Use
  Company Number: 05P-163-0304342-00

PATIENT
  Age: 76 Year
  Sex: Female
  Weight: 135 kg

DRUGS (8)
  1. HUMIRA [Suspect]
     Indication: RHEUMATOID ARTHRITIS
     Dosage: 40 MG, 1 IN 2 WK, SUBCUTANEOUS; 40 MG, 1 IN 2 WK, SUBCUTANEOUS
     Route: 058
     Dates: start: 20050319, end: 20050501
  2. HUMIRA [Suspect]
     Indication: RHEUMATOID ARTHRITIS
     Dosage: 40 MG, 1 IN 2 WK, SUBCUTANEOUS; 40 MG, 1 IN 2 WK, SUBCUTANEOUS
     Route: 058
     Dates: start: 20050611
  3. DICLOFENAC [Concomitant]
  4. PREDNISONE [Concomitant]
  5. METHOTREXATE [Concomitant]
  6. NIFEDIPINE [Concomitant]
  7. FLUVASTATIN SODIUM [Concomitant]
  8. FOLIC ACID [Concomitant]

REACTIONS (4)
  - BRONCHITIS [None]
  - INJECTION SITE PAIN [None]
  - LUNG INFECTION [None]
  - SINUSITIS [None]
